FAERS Safety Report 10036061 (Version 1)
Quarter: 2014Q1

REPORT INFORMATION
  Report Type: Other
  Country: CA (occurrence: CA)
  Receive Date: 20140325
  Receipt Date: 20140325
  Transmission Date: 20141002
  Serious: Yes (Hospitalization)
  Sender: FDA-Public Use
  Company Number: CA-BRISTOL-MYERS SQUIBB COMPANY-20550331

PATIENT
  Age: 75 Year
  Sex: Female

DRUGS (7)
  1. METFORMIN HCL [Suspect]
  2. ACETYLSALICYLIC ACID [Suspect]
  3. IRBESARTAN [Suspect]
  4. AMLODIPINE [Suspect]
  5. ATORVASTATIN [Suspect]
  6. TRAZODONE HCL [Suspect]
  7. QUETIAPINE [Suspect]
     Dosage: 75 MG?275 MG

REACTIONS (2)
  - Memory impairment [Unknown]
  - Abnormal behaviour [Unknown]
